FAERS Safety Report 9834932 (Version 1)
Quarter: 2014Q1

REPORT INFORMATION
  Report Type: Spontaneous
  Country: IT (occurrence: IT)
  Receive Date: 20140122
  Receipt Date: 20140122
  Transmission Date: 20141002
  Serious: Yes (Other)
  Sender: FDA-Public Use
  Company Number: IT-GLAXOSMITHKLINE-B0962178A

PATIENT
  Age: 84 Year
  Sex: Male

DRUGS (3)
  1. RYTHMOL [Suspect]
     Indication: ATRIAL FIBRILLATION
     Dosage: 650MG PER DAY
     Route: 048
     Dates: start: 20130101, end: 20131221
  2. CARDIOASPIRIN [Concomitant]
     Route: 048
  3. AVODART [Concomitant]
     Route: 048

REACTIONS (6)
  - Atrial fibrillation [Recovering/Resolving]
  - Asthenia [Recovering/Resolving]
  - Chest pain [Recovering/Resolving]
  - Dyspnoea [Recovering/Resolving]
  - Hyperhidrosis [Recovering/Resolving]
  - Back pain [Unknown]
